FAERS Safety Report 24610631 (Version 2)
Quarter: 2024Q4

REPORT INFORMATION
  Report Type: Spontaneous
  Country: US (occurrence: US)
  Receive Date: 20241112
  Receipt Date: 20241113
  Transmission Date: 20250115
  Serious: No
  Sender: MERCK
  Company Number: US-009507513-2410USA010836

PATIENT
  Sex: Female
  Weight: 71.202 kg

DRUGS (12)
  1. WINREVAIR [Suspect]
     Active Substance: SOTATERCEPT-CSRK
     Indication: Product used for unknown indication
     Dosage: UNK
     Dates: start: 2024
  2. TYVASO DPI [Suspect]
     Active Substance: TREPROSTINIL
     Indication: Pulmonary arterial hypertension
     Dosage: 72 MICROGRAM, QID (12 BREATHS)
     Dates: start: 20230927
  3. LISINOPRIL [Concomitant]
     Active Substance: LISINOPRIL
  4. LOPERAMIDE [Concomitant]
     Active Substance: LOPERAMIDE
     Indication: Diarrhoea
  5. OFEV [Concomitant]
     Active Substance: NINTEDANIB
  6. VITAMIN D3 [Concomitant]
     Active Substance: CHOLECALCIFEROL
  7. ATORVASTATIN CALCIUM [Concomitant]
     Active Substance: ATORVASTATIN CALCIUM
  8. OXYGEN [Concomitant]
     Active Substance: OXYGEN
  9. OMEPRAZOLE [Concomitant]
     Active Substance: OMEPRAZOLE
  10. ASPIRIN [Concomitant]
     Active Substance: ASPIRIN
  11. JARDIANCE [Concomitant]
     Active Substance: EMPAGLIFLOZIN
  12. PREDNISONE [Concomitant]
     Active Substance: PREDNISONE

REACTIONS (1)
  - Dizziness [Unknown]

NARRATIVE: CASE EVENT DATE: 20240101
